FAERS Safety Report 15360534 (Version 5)
Quarter: 2018Q4

REPORT INFORMATION
  Report Type: Spontaneous
  Country: DE (occurrence: DE)
  Receive Date: 20180907
  Receipt Date: 20181206
  Transmission Date: 20190204
  Serious: Yes (Other)
  Sender: FDA-Public Use
  Company Number: DE-AUROBINDO-AUR-APL-2018-044517

PATIENT
  Age: 62 Year
  Sex: Male

DRUGS (10)
  1. ONDANSETRON [Suspect]
     Active Substance: ONDANSETRON
     Indication: PREMEDICATION
     Dosage: 8 MILLIGRAM, UNK
     Route: 042
     Dates: start: 20180528
  2. PREDNISOLONE. [Suspect]
     Active Substance: PREDNISOLONE
     Dosage: 120 MILLIGRAM, DOSAGE FORM: UNSPECIFIED
     Route: 048
     Dates: start: 20180602
  3. ONDANSETRON ORODISPERSABLE TABLET [Suspect]
     Active Substance: ONDANSETRON
     Indication: PREMEDICATION
     Dosage: 8 MILLIGRAM, DOSAGE FORM: UNSPECIFIED
     Route: 048
     Dates: start: 20180528
  4. VELCADE [Suspect]
     Active Substance: BORTEZOMIB
     Indication: PRODUCT USED FOR UNKNOWN INDICATION
     Dosage: 1.3 MILLIGRAM/SQ. METER, DOSAGE FORM: LYOPHILIZED POWDER
     Route: 042
     Dates: start: 20180528
  5. BENDAMUSTINE [Suspect]
     Active Substance: BENDAMUSTINE
     Indication: PLASMACYTOMA
     Dosage: 60 MILLIGRAM/SQ. METER, CYCLICAL, DOSAGE FORM: POWDER
     Route: 042
     Dates: start: 20180602
  6. PREDNISOLONE. [Suspect]
     Active Substance: PREDNISOLONE
     Indication: PREMEDICATION
     Dosage: 120 MILLIGRAM, DOSAGE FORM: LYOPHILIZED POWDER
     Route: 042
     Dates: start: 20180602
  7. DEXAMETHASONE. [Suspect]
     Active Substance: DEXAMETHASONE
     Indication: PREMEDICATION
     Dosage: DOSAGE FORM: UNSPECIFIED
     Route: 042
     Dates: start: 20180528, end: 20180609
  8. DEXAMETHASONE. [Suspect]
     Active Substance: DEXAMETHASONE
     Dosage: 20 MILLIGRAM, UNK
     Route: 048
     Dates: start: 20180528, end: 20180609
  9. VELCADE [Suspect]
     Active Substance: BORTEZOMIB
     Indication: PRODUCT USED FOR UNKNOWN INDICATION
     Dosage: 1.3 MILLIGRAM/SQ. METER
     Route: 042
     Dates: start: 20180528
  10. EMEND [Suspect]
     Active Substance: APREPITANT
     Indication: PREMEDICATION
     Dosage: 125 MILLIGRAM,UNK
     Route: 048
     Dates: start: 20180602, end: 20180604

REACTIONS (3)
  - Thrombosis [Recovering/Resolving]
  - Hypertransaminasaemia [Not Recovered/Not Resolved]
  - Prescribed underdose [Unknown]

NARRATIVE: CASE EVENT DATE: 20180531
